FAERS Safety Report 17487041 (Version 1)
Quarter: 2020Q1

REPORT INFORMATION
  Report Type: Spontaneous
  Country: US (occurrence: US)
  Receive Date: 20200219
  Receipt Date: 20200219
  Transmission Date: 20200409
  Serious: Yes (Hospitalization)
  Sender: FDA-Public Use
  Company Number: None

PATIENT
  Age: 75 Year
  Sex: Male
  Weight: 84.37 kg

DRUGS (3)
  1. EMPAGLIFLOZIN (EMPAGLIFLOZIN 25MG TAB) [Suspect]
     Active Substance: EMPAGLIFLOZIN
     Indication: DIABETES MELLITUS
     Route: 048
     Dates: start: 20191018, end: 20191106
  2. FUROSEMIDE (FUROSEMIDE 40MG TAB) [Suspect]
     Active Substance: FUROSEMIDE
     Indication: HYPERTENSION
     Route: 048
     Dates: start: 20190822
  3. FUROSEMIDE (FUROSEMIDE 40MG TAB) [Suspect]
     Active Substance: FUROSEMIDE
     Indication: PERIPHERAL SWELLING

REACTIONS (3)
  - Blood creatinine increased [None]
  - Balanoposthitis [None]
  - Blood urea increased [None]

NARRATIVE: CASE EVENT DATE: 20191114
